FAERS Safety Report 5382940-2 (Version None)
Quarter: 2007Q3

REPORT INFORMATION
  Report Type: 
  Country: None (occurrence: None)
  Receive Date: 20070705
  Receipt Date: 20070620
  Transmission Date: 20080115
  Serious: Yes (Hospitalization)
  Sender: FDA-Public Use
  Company Number: S07-FRA-02785-01

PATIENT
  Age: 77 Year
  Sex: Male

DRUGS (3)
  1. CITALOPRAM HYDROBROMIDE [Suspect]
  2. PREVISCAN (FLUINDIONE) [Suspect]
  3. PREVISCAN (FLUINDIONE) [Suspect]
     Dates: start: 20070221

REACTIONS (13)
  - CEREBRAL HAEMORRHAGE [None]
  - COMA [None]
  - DRUG INTERACTION [None]
  - FALL [None]
  - INTERNATIONAL NORMALISED RATIO INCREASED [None]
  - INTRAVENTRICULAR HAEMORRHAGE [None]
  - MENINGORRHAGIA [None]
  - OXYGEN SATURATION DECREASED [None]
  - PATHOGEN RESISTANCE [None]
  - PNEUMONIA STREPTOCOCCAL [None]
  - SUBARACHNOID HAEMORRHAGE [None]
  - SUBDURAL HAEMATOMA [None]
  - TACHYPNOEA [None]
